FAERS Safety Report 9177982 (Version 3)
Quarter: 2013Q2

REPORT INFORMATION
  Report Type: Spontaneous
  Country: US (occurrence: None)
  Receive Date: 20130315
  Receipt Date: 20130628
  Transmission Date: 20140414
  Serious: Yes (Hospitalization)
  Sender: FDA-Public Use
  Company Number: ACO_34705_2013

PATIENT
  Age: 45 Year
  Sex: Male
  Weight: 52.2 kg

DRUGS (4)
  1. AMPYRA [Suspect]
     Indication: GAIT DISTURBANCE
     Dates: start: 2009
  2. BACLOFEN (BACLOFEN) [Concomitant]
  3. GABAPENTIN (GABAPENTIN) [Concomitant]
  4. VITAMINS [Concomitant]

REACTIONS (5)
  - Pneumonia [None]
  - Bronchial secretion retention [None]
  - Grip strength decreased [None]
  - Peripheral coldness [None]
  - Dyspnoea [None]
